FAERS Safety Report 25106581 (Version 1)
Quarter: 2025Q1

REPORT INFORMATION
  Report Type: Spontaneous
  Country: US (occurrence: None)
  Receive Date: 20250321
  Receipt Date: 20250321
  Transmission Date: 20250409
  Serious: Yes (Other)
  Sender: FDA-CTU
  Company Number: None

PATIENT
  Age: 32 Year
  Sex: Female
  Weight: 81 kg

DRUGS (4)
  1. TALTZ [Suspect]
     Active Substance: IXEKIZUMAB
     Indication: Psoriatic arthropathy
     Route: 058
     Dates: start: 20250128, end: 20250304
  2. HUMIRA [Suspect]
     Active Substance: ADALIMUMAB
  3. PRISTIQ EXTENDED-RELEASE [Concomitant]
     Active Substance: DESVENLAFAXINE SUCCINATE
  4. WELLBUTRIN [Concomitant]
     Active Substance: BUPROPION HYDROCHLORIDE

REACTIONS (14)
  - Chest pain [None]
  - Hypoaesthesia [None]
  - Peripheral swelling [None]
  - Psoriatic arthropathy [None]
  - Influenza like illness [None]
  - Lymphadenopathy [None]
  - Aphonia [None]
  - Dysphagia [None]
  - Rash macular [None]
  - Rash pruritic [None]
  - Rash [None]
  - Quality of life decreased [None]
  - Eczema [None]
  - Insomnia [None]

NARRATIVE: CASE EVENT DATE: 20250306
